FAERS Safety Report 5537011-9 (Version None)
Quarter: 2007Q4

REPORT INFORMATION
  Report Type: 
  Country: None (occurrence: None)
  Receive Date: 20071207
  Receipt Date: 20071204
  Transmission Date: 20080405
  Serious: Yes (Hospitalization)
  Sender: FDA-Public Use
  Company Number: GB-WYE-G00723307

PATIENT
  Sex: Male

DRUGS (2)
  1. EFFEXOR XR [Suspect]
     Indication: DEPRESSION
     Dosage: 75MG, FREQUENCY UNKNOWN
  2. ZISPIN [Suspect]
     Indication: DEPRESSION
     Dosage: 30MG, FREQUENCY UNKNOWN

REACTIONS (2)
  - RHABDOMYOLYSIS [None]
  - SEPTIC SHOCK [None]
